FAERS Safety Report 9443441 (Version 1)
Quarter: 2013Q3

REPORT INFORMATION
  Report Type: Spontaneous
  Country: FR (occurrence: FR)
  Receive Date: 20130806
  Receipt Date: 20130806
  Transmission Date: 20140515
  Serious: Yes (Life-Threatening, Hospitalization, Disabling)
  Sender: FDA-Public Use
  Company Number: PHHY2013FR083086

PATIENT
  Age: 78 Year
  Sex: Male

DRUGS (7)
  1. GLIVEC [Suspect]
     Dosage: 400 MG, QD
     Route: 048
     Dates: start: 201209
  2. XARELTO [Suspect]
     Dosage: UNK UKN, UNK
     Route: 048
     Dates: start: 20130415, end: 20130506
  3. LEVOTHYROX [Concomitant]
     Dosage: UNK UKN, UNK
  4. STABLON [Concomitant]
     Dosage: UNK UKN, UNK
  5. XATRAL [Concomitant]
     Dosage: UNK UKN, UNK
  6. LASILIX [Concomitant]
     Dosage: UNK UKN, UNK
  7. PREVISCAN [Concomitant]
     Dosage: UNK UKN, UNK
     Dates: end: 201304

REACTIONS (1)
  - Subdural haematoma [Recovered/Resolved with Sequelae]
